FAERS Safety Report 5341523-0 (Version None)
Quarter: 2007Q2

REPORT INFORMATION
  Report Type: 
  Country: None (occurrence: None)
  Receive Date: 20070529
  Receipt Date: 20070529
  Transmission Date: 20071010
  Serious: Yes (Hospitalization)
  Sender: FDA-Public Use
  Company Number: None

PATIENT
  Age: 56 Year
  Sex: Female

DRUGS (1)
  1. ERLOTINIB 150MG [Suspect]
     Indication: NON-SMALL CELL LUNG CANCER
     Dosage: 150MG DAILY ORAL
     Route: 048

REACTIONS (6)
  - ACUTE RESPIRATORY DISTRESS SYNDROME [None]
  - PLEURAL EFFUSION [None]
  - PNEUMONIA ASPIRATION [None]
  - PSEUDOMONAS INFECTION [None]
  - SPUTUM CULTURE POSITIVE [None]
  - TRACHEAL STENOSIS [None]
